FAERS Safety Report 5180975-6 (Version None)
Quarter: 2006Q4

REPORT INFORMATION
  Report Type: 
  Country: None (occurrence: None)
  Receive Date: 20061220
  Receipt Date: 20061206
  Transmission Date: 20070319
  Serious: Yes (Other)
  Sender: FDA-Public Use
  Company Number: PHFR2006GB03591

PATIENT

DRUGS (2)
  1. TEGRETOL [Suspect]
     Route: 050
  2. TEGRETOL [Suspect]
     Route: 054

REACTIONS (3)
  - ABDOMINAL DISTENSION [None]
  - DYSPHAGIA [None]
  - SURGERY [None]
